FAERS Safety Report 25269963 (Version 9)
Quarter: 2025Q4

REPORT INFORMATION
  Report Type: Report from Study
  Country: US (occurrence: US)
  Receive Date: 20250505
  Receipt Date: 20251008
  Transmission Date: 20260117
  Serious: Yes (Hospitalization, Other)
  Sender: UCB
  Company Number: US-UCBSA-2025025674

PATIENT
  Sex: Male

DRUGS (3)
  1. ROZANOLIXIZUMAB [Suspect]
     Active Substance: ROZANOLIXIZUMAB
     Indication: Myasthenia gravis
     Dosage: 840 MG/6 ML VIA SUBCUTANEOUS INFUSIONS ONCE WEEKLY FOR SIX WEEKS
     Route: 058
     Dates: start: 20250423, end: 2025
  2. ROZANOLIXIZUMAB [Suspect]
     Active Substance: ROZANOLIXIZUMAB
     Dosage: 840 MG/6 ML, INFUSIONS ONCE WEEKLY FOR SIX WEEKS
     Route: 058
     Dates: start: 20250709
  3. PREDNISONE [Concomitant]
     Active Substance: PREDNISONE
     Indication: Product used for unknown indication
     Dosage: 5 TIMES A DAY

REACTIONS (18)
  - Cardiac disorder [Recovering/Resolving]
  - Arrhythmia [Unknown]
  - Tachycardia [Unknown]
  - Myasthenia gravis [Not Recovered/Not Resolved]
  - Skin cancer [Not Recovered/Not Resolved]
  - Skin neoplasm excision [Not Recovered/Not Resolved]
  - Headache [Recovering/Resolving]
  - Diarrhoea [Recovering/Resolving]
  - Migraine [Recovered/Resolved]
  - Lymphoedema [Not Recovered/Not Resolved]
  - Fatigue [Not Recovered/Not Resolved]
  - Skin laceration [Not Recovered/Not Resolved]
  - Tremor [Not Recovered/Not Resolved]
  - Muscular weakness [Not Recovered/Not Resolved]
  - Cellulitis [Recovered/Resolved]
  - Balance disorder [Not Recovered/Not Resolved]
  - Post procedural complication [Not Recovered/Not Resolved]
  - Drug ineffective [Unknown]

NARRATIVE: CASE EVENT DATE: 20250101
